FAERS Safety Report 21469628 (Version 1)
Quarter: 2022Q4

REPORT INFORMATION
  Report Type: Spontaneous
  Country: US (occurrence: US)
  Receive Date: 20221018
  Receipt Date: 20221018
  Transmission Date: 20230113
  Serious: No
  Sender: FDA-Public Use
  Company Number: US-ADAMAS PHARMA, LLC-2022ADA00797

PATIENT
  Sex: Female

DRUGS (14)
  1. GOCOVRI [Suspect]
     Active Substance: AMANTADINE
     Indication: Dyskinesia
     Dosage: 137 MG, 1X/DAY AT BEDTIME
     Route: 048
     Dates: start: 20210728
  2. ATENOLOL [Concomitant]
     Active Substance: ATENOLOL
  3. CALCIUM [Concomitant]
     Active Substance: CALCIUM
  4. CLONAZEPAM [Concomitant]
     Active Substance: CLONAZEPAM
  5. DULOXETINE [Concomitant]
     Active Substance: DULOXETINE
  6. ENTACAPONE [Concomitant]
     Active Substance: ENTACAPONE
  7. EXCEDRIN EXTRA STRENGTH [Concomitant]
     Active Substance: ACETAMINOPHEN\ASPIRIN\CAFFEINE
  8. GABAPENTIN [Concomitant]
     Active Substance: GABAPENTIN
  9. MAGNESIUM [Concomitant]
     Active Substance: MAGNESIUM
  10. OMEPRAZOLE [Concomitant]
     Active Substance: OMEPRAZOLE
  11. OXYBUTYNIN [Concomitant]
     Active Substance: OXYBUTYNIN
  12. SINEMET [Concomitant]
     Active Substance: CARBIDOPA\LEVODOPA
  13. VITAMIN B12 [Concomitant]
     Active Substance: CYANOCOBALAMIN
  14. VITAMIN D3 [Concomitant]
     Active Substance: CHOLECALCIFEROL

REACTIONS (1)
  - Alopecia [Unknown]
